FAERS Safety Report 12995021 (Version 3)
Quarter: 2016Q4

REPORT INFORMATION
  Report Type: Spontaneous
  Country: US (occurrence: US)
  Receive Date: 20161202
  Receipt Date: 20161227
  Transmission Date: 20170207
  Serious: Yes (Hospitalization, Other)
  Sender: FDA-Public Use
  Company Number: US-JNJFOC-20161200760

PATIENT
  Age: 66 Year
  Sex: Male
  Weight: 73.5 kg

DRUGS (5)
  1. XARELTO [Suspect]
     Active Substance: RIVAROXABAN
     Indication: PRODUCT USED FOR UNKNOWN INDICATION
     Route: 048
  2. ADEMPAS [Suspect]
     Active Substance: RIOCIGUAT
     Indication: PULMONARY HYPERTENSION
     Route: 048
     Dates: start: 20151023
  3. ADEMPAS [Suspect]
     Active Substance: RIOCIGUAT
     Indication: PULMONARY HYPERTENSION
     Route: 048
  4. ADEMPAS [Suspect]
     Active Substance: RIOCIGUAT
     Indication: PULMONARY HYPERTENSION
     Route: 048
  5. OPSUMIT [Concomitant]
     Active Substance: MACITENTAN
     Route: 065

REACTIONS (16)
  - Traumatic fracture [Unknown]
  - Gastric disorder [Unknown]
  - Dehydration [Unknown]
  - Gun shot wound [Unknown]
  - Malaise [Unknown]
  - Neuropathy peripheral [Unknown]
  - Headache [Unknown]
  - Abdominal pain [Unknown]
  - Loss of consciousness [Unknown]
  - Traumatic haemorrhage [Unknown]
  - Abdominal discomfort [Unknown]
  - Feeling abnormal [Unknown]
  - Vomiting [Unknown]
  - Nausea [Unknown]
  - Retching [Unknown]
  - Fluid retention [Unknown]

NARRATIVE: CASE EVENT DATE: 20161031
